FAERS Safety Report 11366117 (Version 2)
Quarter: 2016Q2

REPORT INFORMATION
  Report Type: Spontaneous
  Country: NO (occurrence: NO)
  Receive Date: 20150811
  Receipt Date: 20160516
  Transmission Date: 20160815
  Serious: Yes (Other)
  Sender: FDA-Public Use
  Company Number: NO-TAKEDA-2015TUS003017

PATIENT
  Age: 42 Year
  Sex: Male
  Weight: 72 kg

DRUGS (7)
  1. CYMEVENE                           /00784201/ [Concomitant]
     Active Substance: GANCICLOVIR
  2. MYCOPHENOLATE MOFETIL. [Concomitant]
     Active Substance: MYCOPHENOLATE MOFETIL
  3. SOLU-MEDROL [Concomitant]
     Active Substance: METHYLPREDNISOLONE SODIUM SUCCINATE
  4. ENTYVIO [Suspect]
     Active Substance: VEDOLIZUMAB
     Indication: GRAFT VERSUS HOST DISEASE IN GASTROINTESTINAL TRACT
     Dosage: 300 MG, UNK
     Route: 042
     Dates: start: 20150210
  5. ENTOCORT [Concomitant]
     Active Substance: BUDESONIDE
  6. POSACONAZOLE [Concomitant]
     Active Substance: POSACONAZOLE
  7. BACTRIM [Concomitant]
     Active Substance: SULFAMETHOXAZOLE\TRIMETHOPRIM

REACTIONS (2)
  - Off label use [Unknown]
  - Graft versus host disease in skin [Unknown]

NARRATIVE: CASE EVENT DATE: 20150210
